FAERS Safety Report 23620441 (Version 1)
Quarter: 2024Q1

REPORT INFORMATION
  Report Type: Other
  Country: PK (occurrence: None)
  Receive Date: 20240312
  Receipt Date: 20240312
  Transmission Date: 20240409
  Serious: Yes (Death)
  Sender: FDA-Public Use
  Company Number: PK-ROCHE-3523287

PATIENT
  Age: 75 Year
  Sex: Female

DRUGS (1)
  1. HERCEPTIN [Suspect]
     Active Substance: TRASTUZUMAB
     Indication: Breast cancer
     Route: 058
     Dates: start: 20231208

REACTIONS (4)
  - Respiratory disorder [Fatal]
  - Cough [Fatal]
  - Oxygen saturation decreased [Fatal]
  - Death [Fatal]

NARRATIVE: CASE EVENT DATE: 20240118
